FAERS Safety Report 14912362 (Version 1)
Quarter: 2018Q2

REPORT INFORMATION
  Report Type: Spontaneous
  Country: US (occurrence: US)
  Receive Date: 20180518
  Receipt Date: 20180518
  Transmission Date: 20180711
  Serious: No
  Sender: FDA-Public Use
  Company Number: US-PFIZER INC-2018205556

PATIENT
  Age: 59 Year
  Sex: Female
  Weight: 77.98 kg

DRUGS (1)
  1. IBRANCE [Suspect]
     Active Substance: PALBOCICLIB
     Indication: BREAST CANCER METASTATIC
     Dosage: 125 MG, CYCLIC(D1-21 Q 28 DAYS)
     Route: 048
     Dates: start: 20180426

REACTIONS (1)
  - Rash [Unknown]
